FAERS Safety Report 8428470-2 (Version None)
Quarter: 2012Q2

REPORT INFORMATION
  Report Type: 
  Country: None (occurrence: None)
  Receive Date: 20120612
  Receipt Date: 20120606
  Transmission Date: 20120825
  Serious: No
  Sender: FDA-Public Use
  Company Number: US-PFIZER INC-2012124975

PATIENT
  Sex: Female
  Weight: 73.016 kg

DRUGS (5)
  1. ZOFRAN [Concomitant]
     Dosage: 8 MG, UNK
  2. SUTENT [Suspect]
     Indication: RENAL CELL CARCINOMA
     Dosage: 50 MG, 1X/DAY FOR 42 DAY CYCLE
     Dates: start: 20120501
  3. LISINOPRIL [Concomitant]
     Indication: HYPERTENSION
     Dosage: 2.5 MG, UNK
  4. DETROL LA [Concomitant]
     Dosage: 4 MG, UNK
  5. SIMVASTATIN [Concomitant]
     Indication: BLOOD CHOLESTEROL INCREASED
     Dosage: 40 MG, UNK

REACTIONS (5)
  - BACK PAIN [None]
  - DYSGEUSIA [None]
  - BLOOD PRESSURE INCREASED [None]
  - ACNE [None]
  - CONSTIPATION [None]
